FAERS Safety Report 21265610 (Version 1)
Quarter: 2022Q3

REPORT INFORMATION
  Report Type: Spontaneous
  Country: US (occurrence: None)
  Receive Date: 20220826
  Receipt Date: 20220826
  Transmission Date: 20221026
  Serious: Yes (Other)
  Sender: FDA-Public Use
  Company Number: None

PATIENT
  Age: 26 Year
  Sex: Male
  Weight: 110.22 kg

DRUGS (2)
  1. FLUOXETINE [Suspect]
     Active Substance: FLUOXETINE HYDROCHLORIDE
     Indication: Generalised anxiety disorder
     Dosage: FREQUENCY : DAILY;?
     Route: 048
     Dates: start: 20220815
  2. Vyvase [Concomitant]

REACTIONS (4)
  - Product substitution issue [None]
  - Apathy [None]
  - Therapeutic product effect decreased [None]
  - Depressed mood [None]

NARRATIVE: CASE EVENT DATE: 20220815
